FAERS Safety Report 16896261 (Version 1)
Quarter: 2019Q4

REPORT INFORMATION
  Report Type: Spontaneous
  Country: US (occurrence: US)
  Receive Date: 20191008
  Receipt Date: 20191008
  Transmission Date: 20200122
  Serious: No
  Sender: FDA-Public Use
  Company Number: US-TEVA-2019-US-1117395

PATIENT
  Sex: Female

DRUGS (1)
  1. JUNEL [Suspect]
     Active Substance: ETHINYL ESTRADIOL\NORETHINDRONE ACETATE
     Indication: ACNE
     Route: 065

REACTIONS (3)
  - Product dose omission [Unknown]
  - Vaginal haemorrhage [Unknown]
  - Abdominal pain [Unknown]

NARRATIVE: CASE EVENT DATE: 201903
